FAERS Safety Report 16375847 (Version 2)
Quarter: 2019Q2

REPORT INFORMATION
  Report Type: Report from Study
  Country: FR (occurrence: FR)
  Receive Date: 20190531
  Receipt Date: 20190624
  Transmission Date: 20190711
  Serious: Yes (Other)
  Sender: FDA-Public Use
  Company Number: FR-ROCHE-2327272

PATIENT

DRUGS (1)
  1. PITUITARY AND HYPOTHALAMIC HORMONES AND ANALOGUES [Suspect]
     Active Substance: UNSPECIFIED INGREDIENT
     Indication: GROWTH HORMONE DEFICIENCY
     Route: 065

REACTIONS (2)
  - Creutzfeldt-Jakob disease [Unknown]
  - Suspected transmission of an infectious agent via product [Unknown]
